FAERS Safety Report 8766779 (Version 1)
Quarter: 2012Q4

REPORT INFORMATION
  Report Type: 
  Country: US (occurrence: US)
  Receive Date: 20120904
  Receipt Date: 20120904
  Transmission Date: 20130627
  Serious: Yes (Other)
  Sender: FDA-Public Use
  Company Number: US-PFIZER INC-2012215646

PATIENT
  Age: 46 Year
  Sex: Female

DRUGS (4)
  1. LOPID [Suspect]
     Dosage: 600 mg, 2x/day
     Route: 048
     Dates: start: 2012
  2. LANTUS [Concomitant]
     Dosage: UNK
  3. HUMALOG [Concomitant]
     Dosage: UNK
  4. VENTOLIN [Concomitant]
     Dosage: UNK

REACTIONS (2)
  - Diabetes mellitus [Unknown]
  - Asthma [Unknown]
